FAERS Safety Report 13058239 (Version 2)
Quarter: 2017Q1

REPORT INFORMATION
  Report Type: Report from Study
  Country: US (occurrence: US)
  Receive Date: 20161223
  Receipt Date: 20170119
  Transmission Date: 20170428
  Serious: Yes (Other)
  Sender: FDA-Public Use
  Company Number: US-BRISTOL-MYERS SQUIBB COMPANY-BMS-2016-106904

PATIENT
  Sex: Female

DRUGS (1)
  1. DASATINIB [Suspect]
     Active Substance: DASATINIB
     Indication: CHRONIC MYELOID LEUKAEMIA
     Dosage: 1 TAB, QD
     Route: 048
     Dates: start: 20150819

REACTIONS (7)
  - Anxiety [Unknown]
  - Brain oedema [Unknown]
  - Tooth loss [Unknown]
  - Headache [Unknown]
  - Tremor [Unknown]
  - Pleural effusion [Unknown]
  - Gingival bleeding [Unknown]
